FAERS Safety Report 6047365-5 (Version None)
Quarter: 2009Q1

REPORT INFORMATION
  Report Type: 
  Country: None (occurrence: None)
  Receive Date: 20090122
  Receipt Date: 20090113
  Transmission Date: 20090719
  Serious: Yes (Disabling)
  Sender: FDA-Public Use
  Company Number: US-MERCK-0901USA02536

PATIENT
  Sex: Female

DRUGS (1)
  1. VYTORIN [Suspect]
     Route: 048

REACTIONS (5)
  - GAIT DISTURBANCE [None]
  - LIVER INJURY [None]
  - MUSCLE INJURY [None]
  - MYALGIA [None]
  - PNEUMONIA [None]
